FAERS Safety Report 4701504-4 (Version None)
Quarter: 2005Q2

REPORT INFORMATION
  Report Type: 
  Country: None (occurrence: None)
  Receive Date: 20050627
  Receipt Date: 20050616
  Transmission Date: 20051028
  Serious: Yes (Hospitalization)
  Sender: FDA-Public Use
  Company Number: 6015502

PATIENT
  Age: 56 Year
  Sex: Female

DRUGS (4)
  1. MAINTATE (TABLET) (BISOPROLOL FUMARATE) [Suspect]
     Indication: ATRIAL FIBRILLATION
     Dosage: 2.5 MG (2,5 MG, 1 IN 1 D), ORAL
     Route: 048
     Dates: start: 20040101, end: 20050301
  2. MAINTATE (TABLET) (BISOPROLOL FUMARATE) [Suspect]
     Indication: HYPERTENSION
     Dosage: 2.5 MG (2,5 MG, 1 IN 1 D), ORAL
     Route: 048
     Dates: start: 20040101, end: 20050301
  3. MAINTATE (TABLET) (BISOPROLOL FUMARATE) [Suspect]
     Indication: ATRIAL FIBRILLATION
     Dosage: 2.5 MG (2,5 MG, 1 IN 1 D), ORAL
     Route: 048
     Dates: start: 20050510, end: 20050605
  4. MAINTATE (TABLET) (BISOPROLOL FUMARATE) [Suspect]
     Indication: HYPERTENSION
     Dosage: 2.5 MG (2,5 MG, 1 IN 1 D), ORAL
     Route: 048
     Dates: start: 20050510, end: 20050605

REACTIONS (7)
  - ATRIAL FIBRILLATION [None]
  - BRADYCARDIA [None]
  - DISEASE RECURRENCE [None]
  - FALL [None]
  - NODAL RHYTHM [None]
  - SINUS ARREST [None]
  - TREATMENT NONCOMPLIANCE [None]
